FAERS Safety Report 4507458-8 (Version None)
Quarter: 2004Q4

REPORT INFORMATION
  Report Type: 
  Country: None (occurrence: None)
  Receive Date: 20041118
  Receipt Date: 20041104
  Transmission Date: 20050328
  Serious: Yes (Other)
  Sender: FDA-Public Use
  Company Number: 2004BL007724

PATIENT
  Age: 81 Year
  Sex: Male

DRUGS (4)
  1. ERYTHROCIN [Suspect]
     Indication: CORNEAL TRANSPLANT
     Dosage: 1 RIBBON; 3 TIMES A DAY; LEFT EYE
     Dates: start: 20040330
  2. ALOPHAGAN P [Concomitant]
  3. LOTEMAX [Concomitant]
  4. LUMIGAN [Concomitant]

REACTIONS (5)
  - BLINDNESS [None]
  - EYE REDNESS [None]
  - OPTIC NERVE INJURY [None]
  - POST PROCEDURAL COMPLICATION [None]
  - VISION BLURRED [None]
